FAERS Safety Report 5302969-X (Version None)
Quarter: 2007Q2

REPORT INFORMATION
  Report Type: 
  Country: None (occurrence: None)
  Receive Date: 20070417
  Receipt Date: 20070417
  Transmission Date: 20071010
  Serious: No
  Sender: FDA-Public Use
  Company Number: None

PATIENT
  Age: 47 Year
  Sex: Female
  Weight: 52.6173 kg

DRUGS (1)
  1. ZICAM NASAL GEL SWABS ZICAM LLC [Suspect]
     Indication: NASOPHARYNGITIS
     Dosage: 1 SWAB EVERY 4 HOURS NASAL
     Route: 045
     Dates: start: 20070214, end: 20070228

REACTIONS (3)
  - AGEUSIA [None]
  - ANOSMIA [None]
  - NASAL ULCER [None]
